FAERS Safety Report 7782611-9 (Version None)
Quarter: 2011Q3

REPORT INFORMATION
  Report Type: 
  Country: None (occurrence: None)
  Receive Date: 20110928
  Receipt Date: 20110916
  Transmission Date: 20111222
  Serious: Yes (Other)
  Sender: FDA-Public Use
  Company Number: US-JNJFOC-20110907542

PATIENT
  Sex: Female

DRUGS (5)
  1. REMICADE [Suspect]
     Indication: COLITIS ULCERATIVE
     Route: 042
     Dates: start: 20110301
  2. TYLENOL-500 [Concomitant]
     Indication: PREMEDICATION
     Route: 065
  3. CLARITIN [Concomitant]
     Indication: PREMEDICATION
     Route: 065
  4. CORGARD [Concomitant]
     Indication: LONG QT SYNDROME
     Route: 048
  5. REMICADE [Suspect]
     Indication: CROHN'S DISEASE
     Route: 042
     Dates: start: 20110301

REACTIONS (10)
  - DRUG INEFFECTIVE [None]
  - VERTIGO [None]
  - ACNE [None]
  - INGROWING NAIL [None]
  - WRONG TECHNIQUE IN DRUG USAGE PROCESS [None]
  - INCORRECT DRUG ADMINISTRATION DURATION [None]
  - HEADACHE [None]
  - NEURALGIA [None]
  - RECURRING SKIN BOILS [None]
  - FEELING ABNORMAL [None]
